FAERS Safety Report 15191909 (Version 3)
Quarter: 2019Q3

REPORT INFORMATION
  Report Type: Spontaneous
  Country: US (occurrence: US)
  Receive Date: 20180724
  Receipt Date: 20190801
  Transmission Date: 20191004
  Serious: Yes (Other)
  Sender: FDA-Public Use
  Company Number: US-SA-2018SA199776

PATIENT
  Age: 55 Year
  Sex: Female
  Weight: 134.7 kg

DRUGS (5)
  1. TAXOTERE [Suspect]
     Active Substance: DOCETAXEL
     Indication: BREAST CANCER FEMALE
     Dosage: 4 MG, Q3W
     Route: 042
     Dates: start: 201602, end: 201602
  2. TAXOTERE [Suspect]
     Active Substance: DOCETAXEL
     Dosage: 4 MG, Q3W
     Route: 042
     Dates: start: 201605, end: 201605
  3. TAXOL [Concomitant]
     Active Substance: PACLITAXEL
  4. NEOSAR [Concomitant]
     Active Substance: CYCLOPHOSPHAMIDE
  5. ADRIAMYCIN [Concomitant]
     Active Substance: DOXORUBICIN HYDROCHLORIDE

REACTIONS (1)
  - Alopecia [Recovering/Resolving]

NARRATIVE: CASE EVENT DATE: 201508
